FAERS Safety Report 12763358 (Version 1)
Quarter: 2016Q3

REPORT INFORMATION
  Report Type: Spontaneous
  Country: US (occurrence: US)
  Receive Date: 20160919
  Receipt Date: 20160919
  Transmission Date: 20161109
  Serious: Yes (Hospitalization)
  Sender: FDA-Public Use
  Company Number: None

PATIENT
  Age: 73 Year
  Sex: Male
  Weight: 117 kg

DRUGS (10)
  1. BUMETAMIDE [Concomitant]
  2. DIGOXIN. [Concomitant]
     Active Substance: DIGOXIN
  3. GABAPENTIN. [Concomitant]
     Active Substance: GABAPENTIN
  4. LISINOPRIL. [Concomitant]
     Active Substance: LISINOPRIL
  5. GLIPIZIDE. [Concomitant]
     Active Substance: GLIPIZIDE
  6. INSULIN DETEMIR [Concomitant]
     Active Substance: INSULIN DETEMIR
  7. METOPROLOL SUCCINATE ER [Concomitant]
     Active Substance: METOPROLOL SUCCINATE
  8. SPIRONOLACTONE. [Concomitant]
     Active Substance: SPIRONOLACTONE
  9. APIXABAN [Suspect]
     Active Substance: APIXABAN
     Indication: ATRIAL FIBRILLATION
     Route: 048
     Dates: start: 20151003, end: 20151006
  10. ROSUVASTATIN. [Concomitant]
     Active Substance: ROSUVASTATIN

REACTIONS (4)
  - International normalised ratio increased [None]
  - Epistaxis [None]
  - Hypertension [None]
  - Haemoglobin decreased [None]

NARRATIVE: CASE EVENT DATE: 20151007
